FAERS Safety Report 16497330 (Version 1)
Quarter: 2019Q2

REPORT INFORMATION
  Report Type: Report from Study
  Country: JP (occurrence: JP)
  Receive Date: 20190628
  Receipt Date: 20190628
  Transmission Date: 20190711
  Serious: Yes (Hospitalization)
  Sender: FDA-Public Use
  Company Number: JP-PFIZER INC-2019261123

PATIENT
  Age: 42 Year
  Sex: Male
  Weight: 80.4 kg

DRUGS (8)
  1. HYDROCORTISONE. [Concomitant]
     Active Substance: HYDROCORTISONE
     Indication: HAEMORRHOIDS
     Dosage: 1 DF(APPLICATION), AS NEEDED
     Route: 061
     Dates: start: 20180319
  2. LOPERAMIDE HYDROCHLORIDE. [Concomitant]
     Active Substance: LOPERAMIDE HYDROCHLORIDE
     Indication: DIARRHOEA
     Dosage: 1 MG, AS NEEDED (PRN)
     Route: 048
     Dates: start: 20170713
  3. BETAMETHASONE VALERATE. [Concomitant]
     Active Substance: BETAMETHASONE VALERATE
     Indication: RASH
     Dosage: 1 DF (APPLICATION), AS NEEDED (PRN)
     Route: 061
     Dates: start: 20190220
  4. SCOPOLAMINE BUTYLBROMIDE [Concomitant]
     Active Substance: SCOPOLAMINE
     Indication: PAIN PROPHYLAXIS
     Dosage: 10 MG, AS NEEDED (PRN)
     Route: 048
     Dates: start: 20170726
  5. LEVOCETIRIZINE HYDROCHLORIDE [Concomitant]
     Active Substance: LEVOCETIRIZINE HYDROCHLORIDE
     Indication: RASH
     Dosage: 5 MG, 1X/DAY
     Route: 048
     Dates: start: 20170726
  6. CROTAMITON HYDROCORTISONE [Concomitant]
     Indication: RASH
     Dosage: 1 DF (APPLICATION), AS NEEDED (PRN)
     Route: 061
     Dates: start: 20190220
  7. BOSULIF [Suspect]
     Active Substance: BOSUTINIB MONOHYDRATE
     Indication: CHRONIC MYELOID LEUKAEMIA
     Dosage: 400 MG, 1X/DAY
     Route: 048
     Dates: start: 20170712
  8. BUDESONIDE FORMOTEROL FUMARATE HYDRATE [Concomitant]
     Indication: CHILDHOOD ASTHMA
     Dosage: 1 DF (PUSH), 2X/DAY
     Route: 055
     Dates: start: 20171215

REACTIONS (1)
  - Nephropathy toxic [Not Recovered/Not Resolved]

NARRATIVE: CASE EVENT DATE: 20190618
